FAERS Safety Report 9559745 (Version 2)
Quarter: 2013Q4

REPORT INFORMATION
  Report Type: Spontaneous
  Country: US (occurrence: None)
  Receive Date: 20130924
  Receipt Date: 20131126
  Transmission Date: 20140711
  Serious: Yes (Other)
  Sender: FDA-Public Use
  Company Number: AUR-APL-2013-07821

PATIENT
  Age: 57 Year
  Sex: Female
  Weight: 104 kg

DRUGS (8)
  1. METFORMIN [Suspect]
     Indication: TYPE 2 DIABETES MELLITUS
     Dosage: 1000 MG (500 MG, 2 IN 1 D), ORAL
     Route: 048
  2. CHANTIX [Suspect]
     Indication: SMOKING CESSATION THERAPY
     Route: 048
     Dates: start: 20130223
  3. LISINOPRIL (LISINOPRIL) [Concomitant]
  4. ASPIRIN (ACETYLSALICYLIC ACID) [Concomitant]
  5. VITAMIN D3 (COLECALCIFEROL) [Concomitant]
  6. ATORVASTATIN CALCIUM (ATORVASTATIN CALCIUM) [Concomitant]
  7. CITALOPRAM (CITALOPRAM) [Concomitant]
  8. BACLOFEN [Concomitant]

REACTIONS (3)
  - Abnormal dreams [None]
  - Oedematous kidney [None]
  - Back pain [None]
